FAERS Safety Report 13717373 (Version 1)
Quarter: 2017Q3

REPORT INFORMATION
  Report Type: Spontaneous
  Country: CA (occurrence: CA)
  Receive Date: 20170705
  Receipt Date: 20170705
  Transmission Date: 20171127
  Serious: Yes (Death)
  Sender: FDA-Public Use
  Company Number: CA-PFIZER INC-2017143869

PATIENT
  Age: 88 Year
  Sex: Female

DRUGS (10)
  1. VITAMIN B12 [Concomitant]
     Active Substance: CYANOCOBALAMIN
     Dosage: 1000 UG, DAILY
  2. FUROSEMIDE. [Concomitant]
     Active Substance: FUROSEMIDE
     Dosage: 20 MG, AS NEEDED
  3. CALCIUM [Concomitant]
     Active Substance: CALCIUM
     Dosage: 650 MG, DAILY
  4. OXYGEN. [Concomitant]
     Active Substance: OXYGEN
     Dosage: 2 L/MIN, AS NEEDED
  5. ZOMETA [Concomitant]
     Active Substance: ZOLEDRONIC ACID
     Dosage: 3 MG, (1/4 TABLET)
  6. VITALEX [Concomitant]
     Dosage: UNK, DAILY
  7. VITAMIN D [Concomitant]
     Active Substance: CHOLECALCIFEROL
     Dosage: 25 MG, DAILY
  8. IBRANCE [Suspect]
     Active Substance: PALBOCICLIB
     Indication: BREAST CANCER
     Dosage: 75 MG, DAILY FOR 21 DAYS ON AND 7 DAYS OFF
     Route: 048
     Dates: start: 20170405
  9. IBRANCE [Suspect]
     Active Substance: PALBOCICLIB
     Dosage: 125 MG 1 TAB DAILY FOR 21 DAYS AND 7 DAYS OFF
     Route: 048
     Dates: start: 20170405
  10. FASLODEX [Concomitant]
     Active Substance: FULVESTRANT
     Dosage: UNK

REACTIONS (3)
  - Death [Fatal]
  - Blood test abnormal [Unknown]
  - Visual impairment [Unknown]

NARRATIVE: CASE EVENT DATE: 20170527
